FAERS Safety Report 9307647 (Version 2)
Quarter: 2013Q3

REPORT INFORMATION
  Report Type: Spontaneous
  Country: US (occurrence: US)
  Receive Date: 20130524
  Receipt Date: 20130814
  Transmission Date: 20140515
  Serious: Yes (Other)
  Sender: FDA-Public Use
  Company Number: US-BAYER-2013-064554

PATIENT
  Age: 23 Year
  Sex: Female
  Weight: 68.03 kg

DRUGS (4)
  1. YASMIN [Suspect]
     Dosage: UNK
     Dates: start: 2009, end: 20120530
  2. OCELLA [Suspect]
     Indication: ACNE
     Dosage: UNK
     Dates: start: 2009, end: 20120530
  3. AMITRIPTYLINE [Concomitant]
  4. SINGULAIR [Concomitant]
     Indication: MULTIPLE ALLERGIES

REACTIONS (3)
  - Deep vein thrombosis [None]
  - Injury [None]
  - Pain [None]
